FAERS Safety Report 7415384-X (Version None)
Quarter: 2011Q2

REPORT INFORMATION
  Report Type: 
  Country: None (occurrence: None)
  Receive Date: 20110406
  Receipt Date: 20110330
  Transmission Date: 20111010
  Serious: No
  Sender: FDA-Public Use
  Company Number: 2011-00147

PATIENT
  Age: 85 Year
  Sex: Female
  Weight: 63.5036 kg

DRUGS (4)
  1. LOTREL [Concomitant]
  2. ZICAM COLD REMEDY RAPIDMELTS W/VITAMIN C + ECHINACEA [Suspect]
     Dosage: AS DIRECTED X 2 DAYS
     Dates: start: 20110322, end: 20110323
  3. LIPITOR [Concomitant]
  4. ISUPREL [Concomitant]

REACTIONS (1)
  - AGEUSIA [None]
